FAERS Safety Report 4532800-1 (Version None)
Quarter: 2004Q4

REPORT INFORMATION
  Report Type: 
  Country: None (occurrence: None)
  Receive Date: 20041206
  Receipt Date: 20041018
  Transmission Date: 20050328
  Serious: No
  Sender: FDA-Public Use
  Company Number: USA041081419

PATIENT
  Sex: Male

DRUGS (6)
  1. CYMBALTA [Suspect]
     Indication: DEPRESSION
     Dosage: 30 MG DAY
     Dates: start: 20041001
  2. MULTI-VITAMIN [Concomitant]
  3. OMEGA 3 (FISH OIL) [Concomitant]
  4. NEURONTIN (GABAPENTIN PFIZER) [Concomitant]
  5. VICODIN [Concomitant]
  6. KLONOPIN [Concomitant]

REACTIONS (6)
  - CONFUSIONAL STATE [None]
  - DYSPNOEA [None]
  - FEELING ABNORMAL [None]
  - HEADACHE [None]
  - HEART RATE INCREASED [None]
  - TINNITUS [None]
